FAERS Safety Report 21923383 (Version 3)
Quarter: 2023Q1

REPORT INFORMATION
  Report Type: Spontaneous
  Country: US (occurrence: US)
  Receive Date: 20230129
  Receipt Date: 20230223
  Transmission Date: 20230418
  Serious: No
  Sender: FDA-Public Use
  Company Number: US-BAUSCHBL-2023BNL000506

PATIENT
  Sex: Female

DRUGS (1)
  1. VYZULTA [Suspect]
     Active Substance: LATANOPROSTENE BUNOD
     Indication: Glaucoma
     Dosage: EVERY NIGHT
     Route: 047
     Dates: start: 2022

REACTIONS (4)
  - Exposure via skin contact [Unknown]
  - Product delivery mechanism issue [Unknown]
  - Inability to afford medication [Unknown]
  - Accidental exposure to product [Unknown]
